FAERS Safety Report 9886220 (Version 1)
Quarter: 2014Q1

REPORT INFORMATION
  Report Type: Spontaneous
  Country: US (occurrence: US)
  Receive Date: 20140210
  Receipt Date: 20140210
  Transmission Date: 20141002
  Serious: Yes (Other)
  Sender: FDA-Public Use
  Company Number: US-PFIZER INC-2014035336

PATIENT
  Age: 49 Year
  Sex: Male

DRUGS (2)
  1. ENBREL [Suspect]
     Indication: RHEUMATOID ARTHRITIS
     Dosage: 50 MG, QWK
     Dates: start: 20130601
  2. METHOTREXATE SODIUM [Suspect]
     Dosage: 1 ML, QWK
     Route: 058
     Dates: start: 201211

REACTIONS (6)
  - Loss of consciousness [Recovered/Resolved]
  - Unresponsive to stimuli [Recovered/Resolved]
  - Amnesia [Recovered/Resolved]
  - Muscle rigidity [Recovered/Resolved]
  - Eye disorder [Recovered/Resolved]
  - Drooling [Recovered/Resolved]
